FAERS Safety Report 8184547-0 (Version None)
Quarter: 2012Q1

REPORT INFORMATION
  Report Type: 
  Country: None (occurrence: None)
  Receive Date: 20120305
  Receipt Date: 20120227
  Transmission Date: 20120608
  Serious: Yes (Other)
  Sender: FDA-Public Use
  Company Number: US-MERCK-1202USA04234

PATIENT
  Age: 68 Year
  Sex: Male

DRUGS (3)
  1. PRAVASTATIN SODIUM [Concomitant]
     Route: 065
  2. ZETIA [Concomitant]
     Route: 048
  3. JANUMET [Suspect]
     Indication: DIABETES MELLITUS
     Dosage: ONE-HALF OF A 1000MG/50 TABLET IN THE MORNING AND WHOLE 1000MG/50 TABLET AT NIGHT
     Route: 048

REACTIONS (6)
  - GASTRIC DISORDER [None]
  - SENSATION OF PRESSURE [None]
  - PERIPHERAL COLDNESS [None]
  - WRONG TECHNIQUE IN DRUG USAGE PROCESS [None]
  - CORONARY ARTERY DISEASE [None]
  - ADVERSE EVENT [None]
